FAERS Safety Report 7399095-5 (Version None)
Quarter: 2011Q1

REPORT INFORMATION
  Report Type: 
  Country: None (occurrence: None)
  Receive Date: 20110328
  Receipt Date: 20101112
  Transmission Date: 20110831
  Serious: Yes (Hospitalization, Disabling, Other)
  Sender: FDA-Public Use
  Company Number: 2010P1002600

PATIENT
  Age: 97 Year
  Sex: Female
  Weight: 60.3284 kg

DRUGS (4)
  1. FENTANYL [Suspect]
     Dates: start: 20101111
  2. FENTANYL [Suspect]
     Indication: POST HERPETIC NEURALGIA
     Dosage: 50 MCG.HR; TDER
     Route: 062
     Dates: start: 20100501, end: 20101111
  3. DILAUDID [Concomitant]
  4. NORCO [Concomitant]

REACTIONS (17)
  - PRODUCT SUBSTITUTION ISSUE [None]
  - APPLICATION SITE PAIN [None]
  - PRURITUS [None]
  - APPLICATION SITE ERYTHEMA [None]
  - PAIN IN EXTREMITY [None]
  - INCORRECT DOSE ADMINISTERED BY DEVICE [None]
  - SOMNOLENCE [None]
  - DRUG INEFFECTIVE [None]
  - CARDIAC FAILURE CONGESTIVE [None]
  - URINARY TRACT INFECTION [None]
  - CONTUSION [None]
  - PNEUMONIA [None]
  - DECREASED IMMUNE RESPONSIVENESS [None]
  - STAPHYLOCOCCAL INFECTION [None]
  - SCRATCH [None]
  - DEMENTIA [None]
  - ABASIA [None]
